FAERS Safety Report 13443799 (Version 1)
Quarter: 2017Q2

REPORT INFORMATION
  Report Type: Spontaneous
  Country: US (occurrence: US)
  Receive Date: 20170413
  Receipt Date: 20170413
  Transmission Date: 20170830
  Serious: Yes (Hospitalization)
  Sender: FDA-Public Use
  Company Number: None

PATIENT
  Age: 64 Year
  Sex: Male

DRUGS (1)
  1. IPILIMUMAB [Suspect]
     Active Substance: IPILIMUMAB
     Route: 042
     Dates: start: 20170213, end: 20170306

REACTIONS (3)
  - Liver function test increased [None]
  - Hepatotoxicity [None]
  - Autoimmune disorder [None]

NARRATIVE: CASE EVENT DATE: 20170403
